FAERS Safety Report 9331023 (Version 2)
Quarter: 2013Q3

REPORT INFORMATION
  Report Type: Report from Study
  Country: CA (occurrence: CA)
  Receive Date: 20130605
  Receipt Date: 20130819
  Transmission Date: 20140515
  Serious: Yes (Hospitalization)
  Sender: FDA-Public Use
  Company Number: CA-ELI_LILLY_AND_COMPANY-CA201303002983

PATIENT
  Age: 79 Year
  Sex: Female
  Weight: 77.55 kg

DRUGS (8)
  1. TERIPARATIDE [Suspect]
     Indication: OSTEOPOROSIS
     Dosage: 20 UG, QD
     Route: 058
     Dates: start: 20120411, end: 20121130
  2. INDERAL [Concomitant]
     Dosage: 120, ONE DAILY
  3. CADUET [Concomitant]
     Dosage: 5/20, ONE DAILY
  4. LECITHIN [Concomitant]
  5. ALDACTONE [Concomitant]
     Dosage: 25, ONE DAILY
  6. FENTANYL [Concomitant]
     Dosage: 50MCG/H
  7. PANTOPRAZOLE [Concomitant]
     Dosage: 40, ONE DAILY
  8. VITAMIN D [Suspect]
     Dosage: 1000IU/ONE DAILY

REACTIONS (2)
  - Loss of consciousness [Recovered/Resolved]
  - Blood calcium increased [Recovered/Resolved with Sequelae]
